FAERS Safety Report 24297929 (Version 2)
Quarter: 2024Q4

REPORT INFORMATION
  Report Type: Spontaneous
  Country: AU (occurrence: AU)
  Receive Date: 20240909
  Receipt Date: 20241028
  Transmission Date: 20250114
  Serious: Yes (Hospitalization, Other)
  Sender: MYLAN
  Company Number: AU-MYLANLABS-2024M1081632

PATIENT
  Sex: Male

DRUGS (3)
  1. CLOZARIL [Suspect]
     Active Substance: CLOZAPINE
     Indication: Schizophrenia
     Dosage: 300 MILLIGRAM
     Route: 048
     Dates: start: 20240613
  2. CLOZARIL [Suspect]
     Active Substance: CLOZAPINE
     Dosage: 300 MILLIGRAM, BID (50 MILLIGRAM AT MORNING AND 250 MILLIGRAM AT NIGHT)
     Route: 048
     Dates: start: 20240911
  3. ZUCLOPENTHIXOL [Concomitant]
     Active Substance: ZUCLOPENTHIXOL
     Indication: Psychotic disorder
     Dosage: 400 MILLIGRAM, QW (WEEKLY)
     Route: 030
     Dates: start: 20240905

REACTIONS (3)
  - Hospitalisation [Unknown]
  - Tardive dyskinesia [Unknown]
  - Therapy interrupted [Unknown]
